FAERS Safety Report 22784221 (Version 7)
Quarter: 2024Q3

REPORT INFORMATION
  Report Type: Spontaneous
  Country: US (occurrence: US)
  Receive Date: 20230803
  Receipt Date: 20240802
  Transmission Date: 20241016
  Serious: No
  Sender: VERTEX
  Company Number: US-VERTEX PHARMACEUTICALS-2023-011317

PATIENT
  Age: 5 Year
  Sex: Female

DRUGS (4)
  1. TRIKAFTA [Suspect]
     Active Substance: ELEXACAFTOR\IVACAFTOR\TEZACAFTOR
     Indication: Cystic fibrosis
     Dosage: GRANULES; 100 MG ELEXA/ 50 MG TEZA/ 75 MG IVA; 75 MG IVA, FREQ UNKNOWN
     Route: 048
     Dates: start: 20230611, end: 202307
  2. TRIKAFTA [Suspect]
     Active Substance: ELEXACAFTOR\IVACAFTOR\TEZACAFTOR
     Dosage: TABLETS (50 MG ELEXA/ 25 MG TEZA/ 37.5 MG IVA AND 75 MG IVA); UNKNOWN DOSAGE REGIMEN
     Route: 048
     Dates: start: 20230727
  3. TRIKAFTA [Suspect]
     Active Substance: ELEXACAFTOR\IVACAFTOR\TEZACAFTOR
     Dosage: SWITCHES THE MORNING AND EVENING DOSE
     Route: 048
     Dates: start: 20230806
  4. TRIKAFTA [Suspect]
     Active Substance: ELEXACAFTOR\IVACAFTOR\TEZACAFTOR
     Dosage: JUST ORANGE TABLETS
     Route: 048
     Dates: start: 20240729

REACTIONS (4)
  - Defiant behaviour [Recovering/Resolving]
  - Impulse-control disorder [Recovering/Resolving]
  - Psychomotor hyperactivity [Recovering/Resolving]
  - Aggression [Recovering/Resolving]

NARRATIVE: CASE EVENT DATE: 20230618
